FAERS Safety Report 9257815 (Version 1)
Quarter: 2013Q2

REPORT INFORMATION
  Report Type: Spontaneous
  Country: DE (occurrence: DE)
  Receive Date: 20130425
  Receipt Date: 20130425
  Transmission Date: 20140414
  Serious: Yes (Other)
  Sender: FDA-Public Use
  Company Number: DE-RB-605-2004

PATIENT
  Age: 0 None
  Sex: Male

DRUGS (1)
  1. SUBUTEX [Suspect]
     Indication: DRUG DEPENDENCE
     Route: 064
     Dates: start: 200305, end: 20040220

REACTIONS (2)
  - Foetal exposure during pregnancy [Recovered/Resolved]
  - Hepatitis C virus test positive [Unknown]
